FAERS Safety Report 8893264 (Version 4)
Quarter: 2013Q2

REPORT INFORMATION
  Report Type: Spontaneous
  Country: CN (occurrence: CN)
  Receive Date: 20121108
  Receipt Date: 20130408
  Transmission Date: 20140414
  Serious: Yes (Death, Hospitalization, Other)
  Sender: FDA-Public Use
  Company Number: CN-GENZYME-CERZ-1002691

PATIENT
  Age: 18 Year
  Sex: Female
  Weight: 45 kg

DRUGS (2)
  1. CEREZYME [Suspect]
     Indication: GAUCHER^S DISEASE
     Dosage: 35 U/KG, Q4W
     Route: 042
     Dates: start: 200412
  2. CEREZYME [Suspect]
     Dosage: 27.9 U/KG, Q2W
     Route: 042
     Dates: end: 20121024

REACTIONS (7)
  - Lung infection [Fatal]
  - Multi-organ failure [Fatal]
  - Respiratory failure [Fatal]
  - Epilepsy [Fatal]
  - Malnutrition [Fatal]
  - Anaemia [Fatal]
  - Thrombocytopenia [Fatal]
